FAERS Safety Report 19369566 (Version 1)
Quarter: 2021Q2

REPORT INFORMATION
  Report Type: Spontaneous
  Country: US (occurrence: US)
  Receive Date: 20210602
  Receipt Date: 20210602
  Transmission Date: 20210717
  Serious: No
  Sender: FDA-Public Use
  Company Number: US-ROCHE-2775844

PATIENT
  Sex: Female

DRUGS (2)
  1. OCREVUS [Suspect]
     Active Substance: OCRELIZUMAB
     Indication: MYELOPATHY
     Dosage: 300 MG 3 TIMES?ON 14/MAY/2018, 30/MAY/2018, 09/JAN/2019, 18/MAR/2019, 18/SEP/2019 AND 23/DEC/2019, R
     Route: 065
     Dates: start: 20180430
  2. OCREVUS [Suspect]
     Active Substance: OCRELIZUMAB
     Indication: RELAPSING MULTIPLE SCLEROSIS

REACTIONS (4)
  - Intentional product misuse [Unknown]
  - Intentional product use issue [Unknown]
  - No adverse event [Unknown]
  - Off label use [Unknown]
